FAERS Safety Report 15179287 (Version 2)
Quarter: 2018Q3

REPORT INFORMATION
  Report Type: Spontaneous
  Country: US (occurrence: US)
  Receive Date: 20180723
  Receipt Date: 20180802
  Transmission Date: 20181010
  Serious: No
  Sender: FDA-Public Use
  Company Number: US-TAKEDA-2018MPI009532

PATIENT
  Sex: Male
  Weight: 70.3 kg

DRUGS (1)
  1. NINLARO [Suspect]
     Active Substance: IXAZOMIB CITRATE
     Indication: PLASMA CELL MYELOMA
     Dosage: 4 MG, UNK
     Route: 048
     Dates: start: 201803

REACTIONS (3)
  - Cystitis [Unknown]
  - Diarrhoea [Not Recovered/Not Resolved]
  - Light chain analysis increased [Not Recovered/Not Resolved]
